FAERS Safety Report 8620900-6 (Version None)
Quarter: 2012Q3

REPORT INFORMATION
  Report Type: 
  Country: None (occurrence: None)
  Receive Date: 20120824
  Receipt Date: 20120820
  Transmission Date: 20120928
  Serious: Yes (Other)
  Sender: FDA-Public Use
  Company Number: CHPA2012US012678

PATIENT
  Age: 67 Year
  Sex: Male

DRUGS (1)
  1. NICOTINE [Suspect]
     Indication: SMOKING CESSATION THERAPY
     Dosage: 14 MG, QD
     Route: 062
     Dates: start: 20120101

REACTIONS (6)
  - NERVOUSNESS [None]
  - PANIC ATTACK [None]
  - INSOMNIA [None]
  - ABNORMAL DREAMS [None]
  - OVERDOSE [None]
  - TREATMENT NONCOMPLIANCE [None]
